FAERS Safety Report 8992363 (Version 1)
Quarter: 2012Q4

REPORT INFORMATION
  Report Type: 
  Country: US (occurrence: US)
  Receive Date: 20121231
  Receipt Date: 20121231
  Transmission Date: 20130627
  Serious: Yes (Other)
  Sender: FDA-Public Use
  Company Number: US-JNJFOC-20120910188

PATIENT
  Age: 67 Year
  Sex: Male

DRUGS (5)
  1. ZYTIGA [Suspect]
     Indication: PROSTATE CANCER METASTATIC
     Dosage: Dose: 250mg x 4 tablets
     Route: 048
     Dates: start: 20120911, end: 20121011
  2. TYLENOL [Suspect]
     Route: 065
  3. TYLENOL [Suspect]
     Indication: PRODUCT USED FOR UNKNOWN INDICATION
     Route: 065
  4. NAPROSYN [Suspect]
     Indication: PRODUCT USED FOR UNKNOWN INDICATION
     Route: 065
  5. PREDNISONE [Suspect]
     Indication: PROSTATE CANCER METASTATIC
     Dosage: Dose: 250mg x 4 tablets
     Route: 048
     Dates: start: 20120911, end: 20121011

REACTIONS (1)
  - Gastritis [Recovered/Resolved]
